FAERS Safety Report 16550537 (Version 1)
Quarter: 2019Q3

REPORT INFORMATION
  Report Type: Spontaneous
  Country: US (occurrence: US)
  Receive Date: 20190709
  Receipt Date: 20190709
  Transmission Date: 20191004
  Serious: Yes (Hospitalization, Disabling, Other)
  Sender: FDA-Public Use
  Company Number: None

PATIENT
  Age: 56 Year
  Sex: Male
  Weight: 96.75 kg

DRUGS (8)
  1. MUCINEX [Concomitant]
     Active Substance: GUAIFENESIN
  2. AVELOX [Suspect]
     Active Substance: MOXIFLOXACIN HYDROCHLORIDE
     Indication: SINUSITIS
     Dosage: ?          QUANTITY:1 TABLET(S);?
     Route: 048
     Dates: start: 20060101, end: 20120101
  3. ADVAIR DISKUS [Concomitant]
     Active Substance: FLUTICASONE PROPIONATE\SALMETEROL XINAFOATE
  4. FLOANSE [Concomitant]
  5. LOSARTEN [Concomitant]
     Active Substance: LOSARTAN
  6. CLONIDINE. [Concomitant]
     Active Substance: CLONIDINE
  7. CLARITIN-D NOS [Concomitant]
     Active Substance: LORATADINE\PSEUDOEPHEDRINE SULFATE
  8. NEXIUM [Concomitant]
     Active Substance: ESOMEPRAZOLE MAGNESIUM

REACTIONS (4)
  - Rotator cuff syndrome [None]
  - Bone fragmentation [None]
  - Tendon rupture [None]
  - Joint injury [None]

NARRATIVE: CASE EVENT DATE: 20190430
